FAERS Safety Report 7037131-6 (Version None)
Quarter: 2010Q4

REPORT INFORMATION
  Report Type: 
  Country: None (occurrence: None)
  Receive Date: 20101011
  Receipt Date: 20100927
  Transmission Date: 20110411
  Serious: Yes (Hospitalization, Other)
  Sender: FDA-Public Use
  Company Number: BR-ELI_LILLY_AND_COMPANY-BR201009007281

PATIENT
  Sex: Female
  Weight: 81 kg

DRUGS (2)
  1. EVISTA [Suspect]
     Indication: OSTEOPOROSIS
     Dosage: UNK, DAILY (1/D)
     Route: 048
     Dates: start: 20060101, end: 20100927
  2. CALCIUM CARBONATE W/COLECALCIFEROL [Concomitant]
     Dosage: 600 MG, DAILY (1/D)
     Route: 048

REACTIONS (3)
  - LIMB INJURY [None]
  - ROAD TRAFFIC ACCIDENT [None]
  - THROMBOSIS [None]
